FAERS Safety Report 6265317-7 (Version None)
Quarter: 2009Q3

REPORT INFORMATION
  Report Type: 
  Country: None (occurrence: None)
  Receive Date: 20090713
  Receipt Date: 20090702
  Transmission Date: 20100115
  Serious: Yes (Hospitalization, Other)
  Sender: FDA-Public Use
  Company Number: JP-ASTRAZENECA-2009AP03282

PATIENT
  Age: 51 Year
  Sex: Male
  Weight: 70 kg

DRUGS (7)
  1. SEROQUEL [Suspect]
     Indication: DELIRIUM
     Route: 048
     Dates: start: 20080808, end: 20080817
  2. RISPERDAL [Suspect]
     Indication: DELIRIUM
     Route: 048
     Dates: start: 20080806, end: 20080808
  3. ROCEPHIN [Suspect]
     Indication: AORTIC DISSECTION
     Route: 042
     Dates: start: 20080815, end: 20080817
  4. CARDENALIN [Concomitant]
     Route: 048
     Dates: start: 20080805
  5. LASIX [Concomitant]
     Route: 048
     Dates: start: 20080808
  6. CALBLOCK [Concomitant]
     Dates: start: 20080726
  7. MICARDIS [Concomitant]
     Dates: start: 20080730

REACTIONS (1)
  - STEVENS-JOHNSON SYNDROME [None]
